FAERS Safety Report 9984545 (Version 1)
Quarter: 2014Q1

REPORT INFORMATION
  Report Type: Report from Study
  Country: US (occurrence: US)
  Receive Date: 20140307
  Receipt Date: 20140307
  Transmission Date: 20141002
  Serious: No
  Sender: FDA-Public Use
  Company Number: US-ABBVIE-13P-163-1182396-00

PATIENT
  Age: 49 Year
  Sex: Male

DRUGS (8)
  1. HUMIRA [Suspect]
     Indication: CROHN^S DISEASE
     Dates: start: 20131101
  2. HUMIRA [Suspect]
     Dates: start: 20131116
  3. HUMIRA [Suspect]
     Dates: start: 20131201
  4. HUMIRA [Suspect]
     Dates: start: 20131216
  5. PREDNISONE [Concomitant]
     Indication: CROHN^S DISEASE
     Dosage: TAPER WITH CURRENT DOSE OF 25 MG DAILY
  6. IMURAN [Concomitant]
     Indication: CROHN^S DISEASE
  7. BACTRIM DS [Concomitant]
     Indication: INFECTION PROPHYLAXIS
  8. NEXIUM [Concomitant]
     Indication: DYSPEPSIA

REACTIONS (1)
  - Extra dose administered [Recovered/Resolved]
